FAERS Safety Report 9454798 (Version 1)
Quarter: 2013Q3

REPORT INFORMATION
  Report Type: Spontaneous
  Country: IT (occurrence: IT)
  Receive Date: 20130812
  Receipt Date: 20130812
  Transmission Date: 20140515
  Serious: Yes (Hospitalization)
  Sender: FDA-Public Use
  Company Number: IT-MYLANLABS-2013S1017189

PATIENT
  Age: 79 Year
  Sex: Male

DRUGS (2)
  1. INDOMETACIN [Suspect]
     Indication: BACK PAIN
     Dosage: 100 MG/DAY
     Route: 065
  2. LISINOPRIL/HYDROCHLOROTHIAZIDE [Concomitant]
     Indication: HYPERTENSION
     Dosage: LISINOPRIL 20 MG/DAY/HYDROCHLOROTHIAZIDE 12.5 MG/DAY
     Route: 065
     Dates: start: 1996

REACTIONS (1)
  - Portal vein thrombosis [Recovered/Resolved]
